FAERS Safety Report 9204999 (Version 2)
Quarter: 2013Q3

REPORT INFORMATION
  Report Type: Spontaneous
  Country: BR (occurrence: BR)
  Receive Date: 20130402
  Receipt Date: 20130731
  Transmission Date: 20140515
  Serious: Yes (Death, Hospitalization, Other)
  Sender: FDA-Public Use
  Company Number: BR-ROCHE-1114944

PATIENT
  Age: 68 Year
  Sex: Male
  Weight: 90 kg

DRUGS (1)
  1. AVASTIN [Suspect]
     Indication: COLON CANCER
     Dosage: LAST DOSE OF RECEIVED ON 15/MAR/2013
     Route: 042
     Dates: start: 20120404

REACTIONS (15)
  - Infection [Fatal]
  - Multi-organ failure [Fatal]
  - Bladder perforation [Not Recovered/Not Resolved]
  - Anal fistula [Not Recovered/Not Resolved]
  - Enterovesical fistula [Not Recovered/Not Resolved]
  - Disease progression [Unknown]
  - Dysphonia [Recovered/Resolved]
  - Hyperaesthesia [Recovered/Resolved]
  - Pruritus [Recovered/Resolved]
  - Hyperhidrosis [Recovered/Resolved]
  - Capillary fragility [Recovered/Resolved]
  - Skin discolouration [Recovered/Resolved]
  - Libido increased [Recovered/Resolved]
  - Libido increased [Recovered/Resolved]
  - Rash erythematous [Recovered/Resolved]
